FAERS Safety Report 24703747 (Version 1)
Quarter: 2024Q4

REPORT INFORMATION
  Report Type: Spontaneous
  Country: US (occurrence: US)
  Receive Date: 20241206
  Receipt Date: 20241206
  Transmission Date: 20250115
  Serious: No
  Sender: AUROBINDO
  Company Number: US-AUROBINDO-AUR-APL-2023-079906

PATIENT
  Age: 59 Year
  Sex: Female

DRUGS (1)
  1. MIRTAZAPINE [Suspect]
     Active Substance: MIRTAZAPINE
     Indication: Product used for unknown indication
     Dosage: (DOSE AS 15) TWO TIMES A DAY
     Route: 048

REACTIONS (5)
  - Depressed mood [Recovering/Resolving]
  - Anxiety [Recovering/Resolving]
  - Restlessness [Recovering/Resolving]
  - Feeling abnormal [Recovering/Resolving]
  - Underdose [Unknown]
